FAERS Safety Report 14389722 (Version 1)
Quarter: 2018Q1

REPORT INFORMATION
  Report Type: Spontaneous
  Country: US (occurrence: US)
  Receive Date: 20180115
  Receipt Date: 20180115
  Transmission Date: 20180509
  Serious: No
  Sender: FDA-Public Use
  Company Number: US-BAUSCH-BL-2017-010528

PATIENT
  Sex: Female

DRUGS (3)
  1. CELEXA [Concomitant]
     Active Substance: CITALOPRAM HYDROBROMIDE
     Indication: ANXIETY
     Route: 048
  2. CLINDAGEL [Suspect]
     Active Substance: CLINDAMYCIN PHOSPHATE
     Indication: DERMATITIS
     Route: 061
     Dates: start: 201703
  3. DOXYCYCLINE. [Suspect]
     Active Substance: DOXYCYCLINE
     Indication: DERMATITIS
     Route: 048
     Dates: start: 201703

REACTIONS (1)
  - Drug ineffective for unapproved indication [Unknown]
